FAERS Safety Report 12450420 (Version 1)
Quarter: 2016Q2

REPORT INFORMATION
  Report Type: Spontaneous
  Country: BR (occurrence: BR)
  Receive Date: 20160609
  Receipt Date: 20160609
  Transmission Date: 20160815
  Serious: Yes (Other)
  Sender: FDA-Public Use
  Company Number: BR-009507513-1606BRA002655

PATIENT
  Age: 55 Year
  Sex: Male
  Weight: 102 kg

DRUGS (1)
  1. BRIDION [Suspect]
     Active Substance: SUGAMMADEX
     Dosage: UNK
     Dates: start: 20160525, end: 20160525

REACTIONS (3)
  - Face oedema [Recovered/Resolved]
  - Oedema [Recovered/Resolved]
  - Systemic lupus erythematosus rash [Recovered/Resolved]

NARRATIVE: CASE EVENT DATE: 20160525
